FAERS Safety Report 4507127-4 (Version None)
Quarter: 2004Q4

REPORT INFORMATION
  Report Type: 
  Country: None (occurrence: None)
  Receive Date: 20041122
  Receipt Date: 20041115
  Transmission Date: 20050328
  Serious: Yes (Life-Threatening, Hospitalization, Disabling)
  Sender: FDA-Public Use
  Company Number: US-MERCK-0411USA02523

PATIENT
  Age: 76 Year
  Sex: Female

DRUGS (2)
  1. VIOXX [Suspect]
     Indication: ARTHRITIS
     Route: 048
     Dates: start: 20030101, end: 20040101
  2. [THERAPY UNSPECIFIED] [Concomitant]
     Route: 065

REACTIONS (2)
  - ABASIA [None]
  - TRANSIENT ISCHAEMIC ATTACK [None]
